FAERS Safety Report 10137584 (Version 1)
Quarter: 2014Q2

REPORT INFORMATION
  Report Type: Spontaneous
  Country: US (occurrence: None)
  Receive Date: 20140428
  Receipt Date: 20140428
  Transmission Date: 20141212
  Serious: Yes (Life-Threatening, Disabling)
  Sender: FDA-Public Use
  Company Number: None

PATIENT
  Age: 70 Year
  Sex: Male
  Weight: 77.11 kg

DRUGS (1)
  1. ZETIA [Suspect]
     Indication: BLOOD CHOLESTEROL
     Dates: start: 20120312, end: 20140122

REACTIONS (6)
  - Inflammation [None]
  - Lung disorder [None]
  - Cough [None]
  - Dyspnoea exertional [None]
  - Lung disorder [None]
  - Mycobacterial infection [None]
